FAERS Safety Report 8350679-7 (Version None)
Quarter: 2012Q2

REPORT INFORMATION
  Report Type: 
  Country: None (occurrence: None)
  Receive Date: 20120510
  Receipt Date: 20120504
  Transmission Date: 20120825
  Serious: Yes (Other)
  Sender: FDA-Public Use
  Company Number: US-BAYER-2011-025733

PATIENT
  Age: 42 Year
  Sex: Female

DRUGS (14)
  1. MAGNEVIST [Suspect]
     Indication: NUCLEAR MAGNETIC RESONANCE IMAGING
  2. MAGNEVIST [Suspect]
     Indication: DIAGNOSTIC PROCEDURE
  3. OPTIMARK [Suspect]
     Indication: NUCLEAR MAGNETIC RESONANCE IMAGING
  4. OMNISCAN [Suspect]
     Indication: NUCLEAR MAGNETIC RESONANCE IMAGING
  5. DAPSONE [Concomitant]
  6. TOPROL-XL [Concomitant]
  7. PHOSLO [Concomitant]
  8. OPTIMARK [Suspect]
     Indication: DIAGNOSTIC PROCEDURE
  9. OMNISCAN [Suspect]
     Indication: DIAGNOSTIC PROCEDURE
  10. ISENTRESS [Concomitant]
  11. OXYCODONE HCL [Concomitant]
  12. GADOLINIUM IN UNSPECIFIED DRUG [Suspect]
     Indication: NUCLEAR MAGNETIC RESONANCE IMAGING BRAIN
     Dosage: UNK
     Dates: start: 20081120
  13. GADOLINIUM IN UNSPECIFIED DRUG [Suspect]
     Indication: HEADACHE
  14. DARUNAVIR HYDRATE [Concomitant]

REACTIONS (10)
  - JOINT RANGE OF MOTION DECREASED [None]
  - PAIN [None]
  - NEPHROGENIC SYSTEMIC FIBROSIS [None]
  - SKIN TIGHTNESS [None]
  - FIBROSIS [None]
  - PIGMENTATION DISORDER [None]
  - MUSCULOSKELETAL STIFFNESS [None]
  - MUSCLE CONTRACTURE [None]
  - SKIN INDURATION [None]
  - SKIN HYPERTROPHY [None]
